FAERS Safety Report 5357600-4 (Version None)
Quarter: 2007Q2

REPORT INFORMATION
  Report Type: 
  Country: None (occurrence: None)
  Receive Date: 20070614
  Receipt Date: 20070605
  Transmission Date: 20071010
  Serious: Yes (Hospitalization)
  Sender: FDA-Public Use
  Company Number: US-ELI_LILLY_AND_COMPANY-US200703006404

PATIENT
  Sex: Male

DRUGS (4)
  1. HUMALOG [Suspect]
     Indication: DIABETES MELLITUS
     Dates: start: 19990101
  2. HUMULIN N [Suspect]
     Dates: start: 19990101
  3. EXENATIDE [Concomitant]
     Dates: start: 20060301, end: 20060801
  4. SYMLIN [Concomitant]
     Dates: start: 20060801

REACTIONS (9)
  - CHRONIC OBSTRUCTIVE PULMONARY DISEASE [None]
  - DIABETIC NEUROPATHY [None]
  - DIABETIC RETINOPATHY [None]
  - DYSPNOEA [None]
  - DYSSTASIA [None]
  - GAIT DISTURBANCE [None]
  - PROTEIN URINE PRESENT [None]
  - SENSORY LOSS [None]
  - WEIGHT INCREASED [None]
